FAERS Safety Report 16317482 (Version 1)
Quarter: 2019Q2

REPORT INFORMATION
  Report Type: Spontaneous
  Country: ES (occurrence: ES)
  Receive Date: 20190516
  Receipt Date: 20190516
  Transmission Date: 20190711
  Serious: Yes (Other)
  Sender: FDA-Public Use
  Company Number: ES-AUROBINDO-AUR-APL-2019-025741

PATIENT

DRUGS (1)
  1. ERTAPENEM POWDER FOR CONCENTRATE FOR SOLUTION FOR INFUSION [Suspect]
     Active Substance: ERTAPENEM
     Indication: ESCHERICHIA URINARY TRACT INFECTION
     Dosage: 1 GRAM, ONCE A DAY
     Route: 042

REACTIONS (7)
  - Hallucinations, mixed [Unknown]
  - Memory impairment [Unknown]
  - Confusional state [Unknown]
  - Neurotoxicity [Recovered/Resolved]
  - Delirium [Unknown]
  - Disorientation [Unknown]
  - Myoclonus [Unknown]
